FAERS Safety Report 4707048-8 (Version None)
Quarter: 2005Q3

REPORT INFORMATION
  Report Type: 
  Country: None (occurrence: None)
  Receive Date: 20050706
  Receipt Date: 20050628
  Transmission Date: 20060218
  Serious: Yes (Life-Threatening)
  Sender: FDA-Public Use
  Company Number: PHBS2005IT09398

PATIENT
  Age: 78 Year
  Sex: Female

DRUGS (4)
  1. VOLTAREN [Suspect]
     Indication: BRONCHITIS CHRONIC
     Dosage: 1 POSOLOGIC UNIT/DIE
     Route: 048
     Dates: start: 20040101
  2. ALDACTONE [Suspect]
     Indication: CARDIAC FAILURE
     Dosage: 100 MG/DIE
     Route: 048
     Dates: start: 20050526, end: 20050606
  3. AMILORIDE HCL AND HYDROCHLOROTHIAZIDE [Suspect]
     Indication: RENAL FAILURE CHRONIC
     Dosage: 1 POSOLOGIC UNIT/DIE
     Route: 048
     Dates: start: 20040101
  4. RAMIPRIL [Suspect]
     Indication: RENAL FAILURE CHRONIC
     Dosage: 5 MG/DAY
     Route: 048
     Dates: start: 20040101

REACTIONS (1)
  - HYPERKALAEMIA [None]
